FAERS Safety Report 4531745-0 (Version None)
Quarter: 2004Q4

REPORT INFORMATION
  Report Type: 
  Country: None (occurrence: None)
  Receive Date: 20041220
  Receipt Date: 20040713
  Transmission Date: 20050328
  Serious: Yes (Other)
  Sender: FDA-Public Use
  Company Number: US-ROCHE-374284

PATIENT
  Age: 53 Year
  Sex: Female
  Weight: 80.3 kg

DRUGS (2)
  1. COPEGUS [Suspect]
     Indication: HEPATITIS C
     Route: 048
     Dates: start: 20031219, end: 20040429
  2. PEGASYS [Suspect]
     Indication: HEPATITIS C
     Route: 058
     Dates: start: 20031219, end: 20040429

REACTIONS (16)
  - ALANINE AMINOTRANSFERASE INCREASED [None]
  - ALPHA 1 FOETOPROTEIN INCREASED [None]
  - ASPARTATE AMINOTRANSFERASE INCREASED [None]
  - GLOBULINS INCREASED [None]
  - HAEMATOCRIT DECREASED [None]
  - HAEMOGLOBIN DECREASED [None]
  - LYMPHOCYTE COUNT DECREASED [None]
  - MEAN CELL HAEMOGLOBIN CONCENTRATION DECREASED [None]
  - NEUTROPHIL COUNT DECREASED [None]
  - PHARYNGOLARYNGEAL PAIN [None]
  - PLATELET COUNT DECREASED [None]
  - PORTAL HYPERTENSION [None]
  - PROTEIN TOTAL INCREASED [None]
  - SARCOIDOSIS [None]
  - VARICES OESOPHAGEAL [None]
  - WHITE BLOOD CELL COUNT DECREASED [None]
